FAERS Safety Report 17979635 (Version 1)
Quarter: 2020Q3

REPORT INFORMATION
  Report Type: Report from Study
  Country: IT (occurrence: IT)
  Receive Date: 20200703
  Receipt Date: 20200703
  Transmission Date: 20201103
  Serious: Yes (Hospitalization, Other)
  Sender: FDA-Public Use
  Company Number: IT-INCYTE CORPORATION-2020IN004353

PATIENT

DRUGS (2)
  1. BINOCRIT [Concomitant]
     Active Substance: ERYTHROPOIETIN
     Indication: PROPHYLAXIS
     Dosage: UNK (40000 UI)
     Route: 065
  2. JAKAVI [Suspect]
     Active Substance: RUXOLITINIB
     Indication: MYELOFIBROSIS
     Dosage: 15 MG, BID
     Route: 048
     Dates: start: 20170905, end: 20191007

REACTIONS (6)
  - Diarrhoea [Not Recovered/Not Resolved]
  - Splenic infarction [Not Recovered/Not Resolved]
  - Sepsis [Not Recovered/Not Resolved]
  - Haemoglobin decreased [Unknown]
  - Myelofibrosis [Not Recovered/Not Resolved]
  - Splenic abscess [Not Recovered/Not Resolved]

NARRATIVE: CASE EVENT DATE: 20200501
